FAERS Safety Report 13585885 (Version 17)
Quarter: 2018Q2

REPORT INFORMATION
  Report Type: Report from Study
  Country: JP (occurrence: JP)
  Receive Date: 20170526
  Receipt Date: 20180604
  Transmission Date: 20180711
  Serious: Yes (Hospitalization)
  Sender: FDA-Public Use
  Company Number: JP-PFIZER INC-2017230487

PATIENT
  Age: 50 Year
  Sex: Male
  Weight: 61.7 kg

DRUGS (34)
  1. AXITINIB [Suspect]
     Active Substance: AXITINIB
     Dosage: 5 MG, CYCLIC (ONCE)
     Route: 048
     Dates: start: 20170524, end: 20170524
  2. FEBURIC [Concomitant]
     Active Substance: FEBUXOSTAT
     Dosage: 20 MG, UNK
     Route: 048
     Dates: start: 201101
  3. AXITINIB [Suspect]
     Active Substance: AXITINIB
     Dosage: 5 MG, CYCLIC (ONCE)
     Route: 048
     Dates: start: 20170329, end: 20170329
  4. AXITINIB [Suspect]
     Active Substance: AXITINIB
     Dosage: 5 MG, CYCLIC (BID)
     Route: 048
     Dates: start: 20170502, end: 20170523
  5. AXITINIB [Suspect]
     Active Substance: AXITINIB
     Dosage: 3 MG, CYCLIC (BID)
     Route: 048
     Dates: start: 20170601
  6. PEMBROLIZUMAB. [Suspect]
     Active Substance: PEMBROLIZUMAB
     Dosage: 200 MG, EVERY 3 WEEKS
     Route: 042
     Dates: start: 20170502, end: 20170502
  7. THYRADIN [Concomitant]
     Active Substance: LEVOTHYROXINE
     Indication: HYPOTHYROIDISM
     Dosage: 25 UG, UNK
     Route: 048
     Dates: start: 20170501, end: 20170525
  8. BETNOVAL G [Concomitant]
     Dosage: 1 DF, UNK
     Route: 061
     Dates: start: 20170227
  9. KENALOG ORABASE [Concomitant]
     Dosage: 1 DF, UNK
     Route: 061
     Dates: start: 20170327
  10. RABEPRAZOLE SODIUM. [Concomitant]
     Active Substance: RABEPRAZOLE SODIUM
     Indication: PROPHYLAXIS AGAINST GASTROINTESTINAL ULCER
     Dosage: 20 MG, UNK
     Route: 048
     Dates: start: 20170330, end: 20170518
  11. HUMULIN R [Concomitant]
     Active Substance: INSULIN HUMAN
     Indication: BLOOD GLUCOSE ABNORMAL
     Dosage: 1 DF, UNK
     Dates: start: 20170331, end: 20170510
  12. SUVENYL [Concomitant]
     Active Substance: HYALURONATE SODIUM
     Dosage: 1 DF, UNK
     Dates: start: 20170123
  13. AZUNOL [Concomitant]
     Active Substance: SODIUM GUALENATE
     Dosage: 2 MG, UNK
     Route: 048
     Dates: start: 20170508, end: 20170518
  14. PREDONINE [Concomitant]
     Active Substance: PREDNISOLONE
     Indication: DIARRHOEA
     Dosage: 20 MG, UNK
     Route: 048
     Dates: start: 20170429, end: 20170509
  15. AXITINIB [Suspect]
     Active Substance: AXITINIB
     Dosage: 5 MG, CYCLIC (BID)
     Route: 048
     Dates: start: 20170412, end: 20170501
  16. AXITINIB [Suspect]
     Active Substance: AXITINIB
     Dosage: 3 MG, CYCLIC (ONCE)
     Route: 048
     Dates: start: 20170531, end: 20170531
  17. URALYT [Concomitant]
     Active Substance: POTASSIUM CITRATE\TRISODIUM CITRATE DIHYDRATE
     Dosage: 1 DF, UNK
     Route: 048
     Dates: start: 200701
  18. EURAX [Concomitant]
     Active Substance: CROTAMITON
     Dosage: 1 DF, UNK
     Route: 061
     Dates: start: 20170309
  19. HEPARINOID OIL BASED CREAM NICHIIKO [Concomitant]
     Dosage: 1 DF, UNK
     Route: 061
     Dates: start: 20170311
  20. LOXOPROFEN SODIUM [Concomitant]
     Active Substance: LOXOPROFEN SODIUM
     Indication: PYREXIA
     Dosage: 60 MG, UNK
     Route: 048
     Dates: start: 20170319
  21. LENDORMIN D [Concomitant]
     Active Substance: BROTIZOLAM
     Dosage: 0.5 DF, UNK
     Route: 048
     Dates: start: 200701
  22. PREDONINE [Concomitant]
     Active Substance: PREDNISOLONE
     Indication: STEROID THERAPY
     Dosage: 10 MG
     Dates: start: 20170510, end: 20170518
  23. AXITINIB [Suspect]
     Active Substance: AXITINIB
     Indication: RENAL CELL CARCINOMA
     Dosage: 5 MG, CYCLIC (BID)
     Route: 048
     Dates: start: 20170215, end: 20170328
  24. AXITINIB [Suspect]
     Active Substance: AXITINIB
     Dosage: 5 MG, CYCLIC (ONCE)
     Route: 048
     Dates: start: 20170411, end: 20170411
  25. PEMBROLIZUMAB. [Suspect]
     Active Substance: PEMBROLIZUMAB
     Dosage: 200 MG, EVERY 3 WEEKS
     Route: 042
     Dates: start: 20170531
  26. RINDERON V [Concomitant]
     Active Substance: BETAMETHASONE VALERATE
     Dosage: 1 DF, UNK
     Route: 061
     Dates: start: 20161230
  27. AZUNOL [Concomitant]
     Active Substance: SODIUM GUALENATE
     Dosage: 1 DF, UNK
     Dates: start: 20170227
  28. BAKTAR [Concomitant]
     Active Substance: SULFAMETHOXAZOLE\TRIMETHOPRIM
     Indication: INFECTION PROPHYLAXIS
     Dosage: 1 DF, UNK
     Route: 048
     Dates: start: 20170330
  29. CRAVIT [Suspect]
     Active Substance: LEVOFLOXACIN
  30. PEMBROLIZUMAB. [Suspect]
     Active Substance: PEMBROLIZUMAB
     Indication: RENAL CELL CARCINOMA
     Dosage: 200 MG, EVERY 3 WEEKS (VOLUME OF INJECTION: 108ML)
     Route: 042
     Dates: start: 20170215, end: 20170308
  31. BESOFTEN [Concomitant]
     Active Substance: PENTOSAN POLYSULFATE SODIUM
     Dosage: 1 DF, UNK
     Route: 061
     Dates: start: 20170227
  32. ALLERMIST [Concomitant]
     Active Substance: FLUTICASONE FUROATE
     Dosage: 4 DF, UNK
     Dates: start: 20170309
  33. REBAMIPIDE [Concomitant]
     Active Substance: REBAMIPIDE
     Dosage: 100 MG, UNK
     Route: 048
     Dates: start: 20170319
  34. XYLOCAINE [Concomitant]
     Active Substance: LIDOCAINE HYDROCHLORIDE
     Dosage: 1 DF, UNK
     Route: 048
     Dates: start: 20170508, end: 20170518

REACTIONS (1)
  - Sinus tachycardia [Recovered/Resolved]

NARRATIVE: CASE EVENT DATE: 20170519
